FAERS Safety Report 24277083 (Version 1)
Quarter: 2024Q3

REPORT INFORMATION
  Report Type: Spontaneous
  Country: US (occurrence: None)
  Receive Date: 20240829
  Receipt Date: 20240829
  Transmission Date: 20241016
  Serious: No
  Sender: Public
  Company Number: None

PATIENT
  Age: 74 Year
  Sex: Male

DRUGS (1)
  1. LENALIDOMIDE [Suspect]
     Active Substance: LENALIDOMIDE
     Indication: Plasma cell myeloma
     Dosage: FREQUENCY : DAILY;?
     Route: 048
     Dates: start: 20240617

REACTIONS (5)
  - Pain [None]
  - Cough [None]
  - Pollakiuria [None]
  - Pyrexia [None]
  - Pulmonary embolism [None]

NARRATIVE: CASE EVENT DATE: 20240724
